FAERS Safety Report 17318689 (Version 2)
Quarter: 2020Q1

REPORT INFORMATION
  Report Type: Spontaneous
  Country: PK (occurrence: PK)
  Receive Date: 20200124
  Receipt Date: 20200201
  Transmission Date: 20200409
  Serious: Yes (Hospitalization, Other)
  Sender: FDA-Public Use
  Company Number: PK-NOVOPROD-708354

PATIENT
  Age: 67 Year
  Sex: Female
  Weight: 55 kg

DRUGS (2)
  1. NOVOMIX 30 FLEXPEN [Suspect]
     Active Substance: INSULIN ASPART
     Indication: TYPE 2 DIABETES MELLITUS
     Dosage: UNK
     Route: 058
     Dates: start: 20170110
  2. NOVOMIX 30 FLEXPEN [Suspect]
     Active Substance: INSULIN ASPART
     Dosage: 62 IU, QD (38 AND 24 UNITS PER DAY)
     Route: 058

REACTIONS (2)
  - Gangrene [Recovered/Resolved]
  - Scratch [Recovered/Resolved]

NARRATIVE: CASE EVENT DATE: 20190323
